FAERS Safety Report 21837826 (Version 1)
Quarter: 2023Q1

REPORT INFORMATION
  Report Type: Spontaneous
  Country: CN (occurrence: CN)
  Receive Date: 20230109
  Receipt Date: 20230109
  Transmission Date: 20230417
  Serious: Yes (Other)
  Sender: FDA-Public Use
  Company Number: CN-PFIZER INC-PV202300002036

PATIENT
  Age: 65 Year
  Sex: Male
  Weight: 62 kg

DRUGS (2)
  1. TYGACIL [Suspect]
     Active Substance: TIGECYCLINE
     Indication: Infection
     Dosage: 50 MG, 2X/DAY
     Route: 041
     Dates: start: 20220730, end: 20220801
  2. CHLORIDE SODIUM [Concomitant]
     Indication: Infection
     Dosage: 100 ML, 2X/DAY
     Route: 041
     Dates: start: 20220730, end: 20220801

REACTIONS (1)
  - Jaundice cholestatic [Recovering/Resolving]

NARRATIVE: CASE EVENT DATE: 20220801
